FAERS Safety Report 19237640 (Version 2)
Quarter: 2021Q2

REPORT INFORMATION
  Report Type: Spontaneous
  Country: US (occurrence: US)
  Receive Date: 20210510
  Receipt Date: 20210526
  Transmission Date: 20210717
  Serious: No
  Sender: FDA-Public Use
  Company Number: US-ASTRAZENECA-2021A342368

PATIENT
  Sex: Male
  Weight: 87.1 kg

DRUGS (1)
  1. SYMBICORT [Suspect]
     Active Substance: BUDESONIDE\FORMOTEROL FUMARATE DIHYDRATE
     Indication: LUNG DISORDER
     Dosage: 160/4.5 ,TWO PUFFS IN THE MORNING AND AT NIGHT
     Route: 055
     Dates: start: 20210407

REACTIONS (5)
  - Intentional device misuse [Unknown]
  - Dyspnoea [Unknown]
  - Device malfunction [Unknown]
  - Drug delivery system issue [Unknown]
  - Drug dose omission by device [Unknown]
